FAERS Safety Report 17580705 (Version 1)
Quarter: 2020Q1

REPORT INFORMATION
  Report Type: Spontaneous
  Country: US (occurrence: US)
  Receive Date: 20200320
  Receipt Date: 20200320
  Transmission Date: 20200409
  Serious: No
  Sender: FDA-Public Use
  Company Number: None

PATIENT
  Age: 50 Year
  Sex: Male

DRUGS (1)
  1. METHOTREXATE (METHOTREXATE NA 10MG TAB) [Suspect]
     Active Substance: METHOTREXATE

REACTIONS (1)
  - Hypersensitivity pneumonitis [None]

NARRATIVE: CASE EVENT DATE: 20181031
